FAERS Safety Report 4843995-4 (Version None)
Quarter: 2005Q4

REPORT INFORMATION
  Report Type: 
  Country: None (occurrence: None)
  Receive Date: 20051202
  Receipt Date: 20050603
  Transmission Date: 20060501
  Serious: No
  Sender: FDA-Public Use
  Company Number: US-GLAXOSMITHKLINE-A0561157A

PATIENT
  Age: 66 Year
  Sex: Female

DRUGS (10)
  1. AUGMENTIN [Suspect]
     Dosage: 1TAB TWICE PER DAY
     Route: 048
     Dates: start: 20050526
  2. BACTROBAN [Suspect]
     Dosage: 1APP THREE TIMES PER DAY
     Route: 045
     Dates: start: 20050526, end: 20050528
  3. NORVASC [Concomitant]
  4. LIPITOR [Concomitant]
  5. AVALIDE [Concomitant]
  6. PROTONIX [Concomitant]
  7. FOSAMAX [Concomitant]
  8. VITAMIN E [Concomitant]
  9. ASCORBIC ACID [Concomitant]
  10. MULTI-VITAMIN [Concomitant]

REACTIONS (1)
  - DRUG INEFFECTIVE [None]
